FAERS Safety Report 18177121 (Version 2)
Quarter: 2020Q3

REPORT INFORMATION
  Report Type: Spontaneous
  Country: IT (occurrence: IT)
  Receive Date: 20200820
  Receipt Date: 20200902
  Transmission Date: 20201103
  Serious: Yes (Other)
  Sender: FDA-Public Use
  Company Number: IT-MYLANLABS-2020M1071569

PATIENT
  Age: 49 Year
  Sex: Female

DRUGS (8)
  1. TEICOPLANIN [Suspect]
     Active Substance: TEICOPLANIN
     Indication: LUNG ABSCESS
     Dosage: UNK
  2. TEICOPLANIN [Suspect]
     Active Substance: TEICOPLANIN
     Indication: ANTIBIOTIC THERAPY
  3. MEROPENEM. [Suspect]
     Active Substance: MEROPENEM
     Indication: ANTIBIOTIC THERAPY
  4. AMPHOTERICIN B. [Suspect]
     Active Substance: AMPHOTERICIN B
     Indication: ANTIBIOTIC THERAPY
  5. LINEZOLID. [Suspect]
     Active Substance: LINEZOLID
     Indication: LUNG ABSCESS
     Dosage: UNK
  6. MEROPENEM. [Suspect]
     Active Substance: MEROPENEM
     Indication: LUNG ABSCESS
     Dosage: UNK
  7. LINEZOLID. [Suspect]
     Active Substance: LINEZOLID
     Indication: ANTIBIOTIC THERAPY
  8. AMPHOTERICIN B. [Suspect]
     Active Substance: AMPHOTERICIN B
     Indication: LUNG ABSCESS
     Dosage: UNK

REACTIONS (2)
  - Treatment failure [Unknown]
  - Pneumothorax [Recovered/Resolved]
